FAERS Safety Report 7462937-9 (Version None)
Quarter: 2011Q2

REPORT INFORMATION
  Report Type: 
  Country: None (occurrence: None)
  Receive Date: 20110506
  Receipt Date: 20110426
  Transmission Date: 20111010
  Serious: Yes (Death, Other)
  Sender: FDA-Public Use
  Company Number: US-JNJFOC-20110312743

PATIENT
  Sex: Male

DRUGS (5)
  1. INVEGA [Suspect]
     Indication: SCHIZOPHRENIA
     Route: 048
  2. BENZODIAZEPINES NOS [Concomitant]
     Indication: SCHIZOPHRENIA
     Route: 065
  3. INDERAL [Concomitant]
     Indication: SCHIZOPHRENIA
     Route: 065
  4. DEPAKOTE [Concomitant]
     Indication: SCHIZOPHRENIA
     Route: 065
  5. HALDOL [Concomitant]
     Indication: SCHIZOPHRENIA
     Route: 065

REACTIONS (3)
  - DEATH [None]
  - SWOLLEN TONGUE [None]
  - DYSKINESIA [None]
